FAERS Safety Report 6076238-7 (Version None)
Quarter: 2009Q1

REPORT INFORMATION
  Report Type: 
  Country: None (occurrence: None)
  Receive Date: 20090212
  Receipt Date: 20090130
  Transmission Date: 20090719
  Serious: Yes (Death)
  Sender: FDA-Public Use
  Company Number: US-TYCO HEALTHCARE/MALLINCKRODT-T200900202

PATIENT
  Age: 65 Year
  Sex: Female

DRUGS (4)
  1. ACETAMINOPHEN AND CODEINE PHOSPHATE [Suspect]
  2. ZOLPIDEM [Suspect]
  3. PROPOXYPHENE HCL CAP [Suspect]
  4. FENTANYL-75 [Suspect]

REACTIONS (1)
  - COMPLETED SUICIDE [None]
